FAERS Safety Report 22170082 (Version 5)
Quarter: 2023Q2

REPORT INFORMATION
  Report Type: Report from Study
  Country: US (occurrence: US)
  Receive Date: 20230404
  Receipt Date: 20230605
  Transmission Date: 20230721
  Serious: No
  Sender: FDA-Public Use
  Company Number: US-002147023-NVSC2023US072893

PATIENT
  Sex: Female

DRUGS (2)
  1. TABRECTA [Suspect]
     Active Substance: CAPMATINIB
     Indication: Lung neoplasm malignant
     Dosage: 400 MG, BID
     Route: 048
     Dates: start: 20230313
  2. TABRECTA [Suspect]
     Active Substance: CAPMATINIB
     Dosage: 600 MG, QD (1 TABLET IN MORNING (200MG) AND 2 TABLETS (400MG) IN EVENING.)
     Route: 048

REACTIONS (8)
  - Sleep disorder [Recovered/Resolved]
  - Burning sensation [Unknown]
  - Neuralgia [Recovering/Resolving]
  - Decreased appetite [Recovering/Resolving]
  - Nausea [Recovering/Resolving]
  - Product after taste [Unknown]
  - Peripheral swelling [Unknown]
  - Gait disturbance [Unknown]
